FAERS Safety Report 15803500 (Version 1)
Quarter: 2019Q1

REPORT INFORMATION
  Report Type: Spontaneous
  Country: US (occurrence: US)
  Receive Date: 20190109
  Receipt Date: 20190109
  Transmission Date: 20190417
  Serious: Yes (Death)
  Sender: FDA-Public Use
  Company Number: US-BAYER-2019-007214

PATIENT
  Age: 45 Year
  Sex: Female

DRUGS (3)
  1. PARACETAMOL [Suspect]
     Active Substance: ACETAMINOPHEN
  2. ALPRAZOLAM. [Suspect]
     Active Substance: ALPRAZOLAM
  3. CODEINE [Suspect]
     Active Substance: CODEINE

REACTIONS (1)
  - Toxicity to various agents [Fatal]
